FAERS Safety Report 22325964 (Version 1)
Quarter: 2023Q2

REPORT INFORMATION
  Report Type: Report from Study
  Country: US (occurrence: None)
  Receive Date: 20230516
  Receipt Date: 20230516
  Transmission Date: 20230722
  Serious: Yes (Death)
  Sender: FDA-Public Use
  Company Number: 2023A112906

PATIENT
  Sex: Male
  Weight: 91.3 kg

DRUGS (10)
  1. CALQUENCE [Suspect]
     Active Substance: ACALABRUTINIB
     Indication: Mantle cell lymphoma
     Route: 048
  2. ASPIRIN [Concomitant]
     Active Substance: ASPIRIN
  3. ATENOLOL [Concomitant]
     Active Substance: ATENOLOL
  4. CALCIUM [Concomitant]
     Active Substance: CALCIUM
  5. LUTEIN [Concomitant]
     Active Substance: LUTEIN
  6. MAGNESIUM [Concomitant]
     Active Substance: MAGNESIUM
  7. PAPAYA [Concomitant]
     Active Substance: PAPAYA
  8. RITUXAN [Concomitant]
     Active Substance: RITUXIMAB
  9. VIT B, C, D [Concomitant]
  10. ZINC [Concomitant]
     Active Substance: ZINC

REACTIONS (1)
  - Death [Fatal]
